FAERS Safety Report 5947168-3 (Version None)
Quarter: 2008Q4

REPORT INFORMATION
  Report Type: 
  Country: None (occurrence: None)
  Receive Date: 20081110
  Receipt Date: 20081030
  Transmission Date: 20090506
  Serious: Yes (Hospitalization)
  Sender: FDA-Public Use
  Company Number: DE-BAXTER-2008BH011831

PATIENT
  Age: 52 Year
  Sex: Female

DRUGS (6)
  1. CYCLOPHOSPHAMIDE [Suspect]
     Indication: BREAST CANCER
     Route: 042
     Dates: start: 20080327, end: 20080508
  2. TAXOL [Suspect]
     Indication: BREAST CANCER
     Route: 042
     Dates: start: 20080521, end: 20080731
  3. CAPECITABINE [Suspect]
     Indication: BREAST CANCER
     Route: 048
     Dates: start: 20080521, end: 20080731
  4. EPIRUBICIN [Suspect]
     Indication: BREAST CANCER
     Route: 042
     Dates: start: 20080327, end: 20080508
  5. IBANDRONATE SODIUM [Suspect]
     Indication: PROPHYLAXIS
     Route: 048
     Dates: start: 20080731, end: 20081024
  6. NEORECORMON ^BOEHRINGER MANNHEIM^ [Concomitant]
     Route: 058
     Dates: start: 20080327, end: 20080731

REACTIONS (1)
  - CHEST PAIN [None]
